FAERS Safety Report 8442613-6 (Version None)
Quarter: 2012Q2

REPORT INFORMATION
  Report Type: 
  Country: None (occurrence: None)
  Receive Date: 20120323
  Receipt Date: 20111025
  Transmission Date: 20120825
  Serious: Yes (Hospitalization)
  Sender: FDA-Public Use
  Company Number: 163-21880-11063484

PATIENT
  Age: 68 Year
  Sex: Male

DRUGS (9)
  1. WARFARIN SODIUM [Concomitant]
  2. VELCADE [Suspect]
     Indication: MULTIPLE MYELOMA
     Dates: end: 20110616
  3. NEURONTIN [Concomitant]
  4. VICODIN [Concomitant]
  5. DECADRON [Suspect]
     Indication: MULTIPLE MYELOMA
     Dosage: 40 MG, BID (MONDAY AND TUESDAY), PO
     Route: 048
  6. LISINOPRIL [Concomitant]
  7. REVLIMID [Suspect]
     Indication: MULTIPLE MYELOMA
     Dosage: 25 MG, 1 IN 1 D, PO
     Route: 048
     Dates: start: 20110401, end: 20110801
  8. MAXZIDE [Concomitant]
  9. ZOMETA [Concomitant]

REACTIONS (6)
  - DEEP VEIN THROMBOSIS [None]
  - PULMONARY EMBOLISM [None]
  - ULCER HAEMORRHAGE [None]
  - GASTROENTERITIS VIRAL [None]
  - FATIGUE [None]
  - NEUROPATHY PERIPHERAL [None]
